FAERS Safety Report 9974749 (Version 1)
Quarter: 2014Q1

REPORT INFORMATION
  Report Type: Report from Study
  Country: US (occurrence: US)
  Receive Date: 20140306
  Receipt Date: 20140306
  Transmission Date: 20141002
  Serious: No
  Sender: FDA-Public Use
  Company Number: US-ABBVIE-13P-163-1156726-00

PATIENT
  Age: 49 Year
  Sex: Female
  Weight: 90.8 kg

DRUGS (11)
  1. HUMIRA [Suspect]
     Indication: CROHN^S DISEASE
     Dates: start: 20130910, end: 20130910
  2. HUMIRA [Suspect]
     Dates: start: 20130925, end: 20130925
  3. HUMIRA [Suspect]
     Dates: start: 20131009, end: 20131009
  4. LIALDA [Concomitant]
     Indication: CROHN^S DISEASE
  5. PREDNISONE [Concomitant]
     Indication: CROHN^S DISEASE
     Route: 048
     Dates: start: 2008, end: 20131009
  6. PREDNISONE [Concomitant]
     Route: 048
     Dates: start: 20131010
  7. DICYCLOMINE [Concomitant]
     Indication: CROHN^S DISEASE
  8. PANTOPRAZOLE [Concomitant]
     Indication: GASTROOESOPHAGEAL REFLUX DISEASE
  9. TRAMADOL [Concomitant]
     Indication: PAIN
     Dosage: AS NEEDED, MAXIMUM TWO DAILY
  10. TRAZODONE [Concomitant]
     Indication: INSOMNIA
     Dosage: ONCE NIGHTLY
  11. ADVAIR [Concomitant]
     Indication: ASTHMA

REACTIONS (1)
  - Overdose [Not Recovered/Not Resolved]
